FAERS Safety Report 25249587 (Version 1)
Quarter: 2025Q2

REPORT INFORMATION
  Report Type: Spontaneous
  Country: US (occurrence: US)
  Receive Date: 20250429
  Receipt Date: 20250429
  Transmission Date: 20250716
  Serious: Yes (Other)
  Sender: ROCHE
  Company Number: US-ROCHE-10000262682

PATIENT
  Age: 62 Year
  Sex: Female

DRUGS (2)
  1. GAZYVA [Suspect]
     Active Substance: OBINUTUZUMAB
     Indication: Chronic lymphocytic leukaemia
     Route: 042
     Dates: start: 201704, end: 201807
  2. UKONIQ [Suspect]
     Active Substance: UMBRALISIB TOSYLATE
     Indication: Chronic lymphocytic leukaemia
     Route: 048
     Dates: start: 201704, end: 201807

REACTIONS (1)
  - Chronic lymphocytic leukaemia recurrent [Unknown]
